FAERS Safety Report 20566207 (Version 1)
Quarter: 2022Q1

REPORT INFORMATION
  Report Type: Spontaneous
  Country: US (occurrence: None)
  Receive Date: 20220307
  Receipt Date: 20220307
  Transmission Date: 20220423
  Serious: No
  Sender: FDA-Public Use
  Company Number: None

PATIENT
  Sex: Female

DRUGS (5)
  1. OLD SPICE SWEAT DEFENSE ULTIMATE CAPTAIN DRY [Suspect]
     Active Substance: ALUMINUM CHLOROHYDRATE
  2. SECRET DRY WATERLILY [Suspect]
     Active Substance: ALUMINUM CHLOROHYDRATE
  3. COSMETICS [Suspect]
     Active Substance: COSMETICS
  4. COSMETICS [Suspect]
     Active Substance: COSMETICS
  5. COSMETICS [Suspect]
     Active Substance: COSMETICS

REACTIONS (1)
  - Respiratory tract irritation [None]
